FAERS Safety Report 18186203 (Version 2)
Quarter: 2020Q3

REPORT INFORMATION
  Report Type: Spontaneous
  Country: JP (occurrence: JP)
  Receive Date: 20200824
  Receipt Date: 20200824
  Transmission Date: 20201103
  Serious: Yes (Death)
  Sender: FDA-Public Use
  Company Number: JP-PFIZER INC-2020324595

PATIENT
  Age: 66 Year
  Sex: Male

DRUGS (3)
  1. FEBURIC [Suspect]
     Active Substance: FEBUXOSTAT
     Route: 048
  2. CABASER [Suspect]
     Active Substance: CABERGOLINE
     Route: 048
  3. SOMAVERT [Suspect]
     Active Substance: PEGVISOMANT
     Indication: ACROMEGALY
     Dosage: 10 MG, THREE TIMES IN A WEEK
     Route: 058
     Dates: start: 2011

REACTIONS (2)
  - Gastric cancer [Fatal]
  - Off label use [Unknown]

NARRATIVE: CASE EVENT DATE: 2011
